FAERS Safety Report 5934805-2 (Version None)
Quarter: 2008Q4

REPORT INFORMATION
  Report Type: 
  Country: None (occurrence: None)
  Receive Date: 20081029
  Receipt Date: 20080331
  Transmission Date: 20090506
  Serious: No
  Sender: FDA-Public Use
  Company Number: US-ASTRAZENECA-2008UW06331

PATIENT
  Age: 41 Year
  Sex: Male
  Weight: 90.7 kg

DRUGS (2)
  1. TENORETIC 100 [Suspect]
     Dosage: 50 MG/12.5
     Route: 048
  2. ATACAND [Suspect]
     Indication: HYPERTENSION
     Route: 048

REACTIONS (1)
  - MOOD ALTERED [None]
